FAERS Safety Report 11421970 (Version 1)
Quarter: 2015Q3

REPORT INFORMATION
  Report Type: Report from Study
  Country: US (occurrence: US)
  Receive Date: 20150827
  Receipt Date: 20150827
  Transmission Date: 20151125
  Serious: Yes (Other)
  Sender: FDA-Public Use
  Company Number: US-PFIZER INC-2015282742

PATIENT
  Age: 70 Year
  Sex: Female
  Weight: 63.5 kg

DRUGS (4)
  1. REVATIO [Suspect]
     Active Substance: SILDENAFIL CITRATE
     Dosage: UNK
     Dates: start: 201501
  2. REMODULIN [Suspect]
     Active Substance: TREPROSTINIL
     Dosage: 0.061 ?G/KG/MIN
     Route: 058
     Dates: start: 20140222
  3. REMODULIN [Suspect]
     Active Substance: TREPROSTINIL
     Indication: PULMONARY ARTERIAL HYPERTENSION
     Dosage: 0.064 ?G/KG/MIN
     Route: 058
     Dates: start: 20140221
  4. LETAIRIS [Suspect]
     Active Substance: AMBRISENTAN
     Dosage: UNK
     Dates: start: 201501

REACTIONS (3)
  - Diarrhoea [Not Recovered/Not Resolved]
  - Rash pruritic [Not Recovered/Not Resolved]
  - Infusion site reaction [Not Recovered/Not Resolved]

NARRATIVE: CASE EVENT DATE: 201501
